FAERS Safety Report 17939605 (Version 2)
Quarter: 2024Q4

REPORT INFORMATION
  Report Type: Spontaneous
  Country: PL (occurrence: PL)
  Receive Date: 20200624
  Receipt Date: 20241106
  Transmission Date: 20250115
  Serious: Yes (Death, Other)
  Sender: NOVARTIS
  Company Number: PL-NOVARTISPH-NVSC2020PL175296

PATIENT
  Age: 31 Year
  Sex: Female

DRUGS (4)
  1. EVEROLIMUS [Suspect]
     Active Substance: EVEROLIMUS
     Indication: Immunosuppression
     Dosage: UNK
     Route: 065
  2. MYCOPHENOLIC ACID [Suspect]
     Active Substance: MYCOPHENOLIC ACID
     Indication: Immunosuppression
     Dosage: UNK UNK, UNKNOWN FREQ
     Route: 065
  3. CYCLOSPORINE [Suspect]
     Active Substance: CYCLOSPORINE
     Indication: Immunosuppression
     Dosage: UNK UNK, UNKNOWN FREQ
     Route: 065
  4. TACROLIMUS [Suspect]
     Active Substance: TACROLIMUS
     Indication: Heart transplant
     Dosage: UNK UNK, UNKNOWN FREQ
     Route: 065
     Dates: start: 2001

REACTIONS (9)
  - Death [Fatal]
  - Pneumocystis jirovecii pneumonia [Unknown]
  - Ischaemic stroke [Unknown]
  - General physical health deterioration [Unknown]
  - Cytomegalovirus infection [Unknown]
  - Treatment failure [Unknown]
  - Muscular weakness [Unknown]
  - Exercise tolerance decreased [Unknown]
  - Abdominal pain upper [Unknown]

NARRATIVE: CASE EVENT DATE: 20070101
